FAERS Safety Report 7395330-8 (Version None)
Quarter: 2011Q2

REPORT INFORMATION
  Report Type: 
  Country: None (occurrence: None)
  Receive Date: 20110405
  Receipt Date: 20110331
  Transmission Date: 20111010
  Serious: Yes (Hospitalization, Other)
  Sender: FDA-Public Use
  Company Number: FR-PFIZER INC-2011071591

PATIENT
  Age: 66 Year
  Sex: Male

DRUGS (3)
  1. TAHOR [Suspect]
     Dosage: UNK
     Route: 048
     Dates: end: 20110201
  2. ARIXTRA [Suspect]
     Dosage: UNK
     Route: 048
     Dates: start: 20101001, end: 20110201
  3. GEMZAR [Suspect]
     Dosage: UNK
     Route: 042
     Dates: start: 20090501, end: 20110118

REACTIONS (4)
  - INTERSTITIAL LUNG DISEASE [None]
  - RESPIRATORY DISTRESS [None]
  - EMPHYSEMA [None]
  - PLEURAL EFFUSION [None]
